FAERS Safety Report 5370554-X (Version None)
Quarter: 2007Q2

REPORT INFORMATION
  Report Type: 
  Country: None (occurrence: None)
  Receive Date: 20070626
  Receipt Date: 20070619
  Transmission Date: 20071010
  Serious: Yes (Hospitalization)
  Sender: FDA-Public Use
  Company Number: FR-ELI_LILLY_AND_COMPANY-FR200706005015

PATIENT
  Age: 60 Year
  Sex: Male

DRUGS (3)
  1. ZYPREXA [Suspect]
     Indication: BIPOLAR I DISORDER
     Dosage: 15 MG, DAILY (1/D)
     Route: 048
     Dates: start: 20010101
  2. XANAX [Concomitant]
     Indication: BIPOLAR I DISORDER
     Dosage: UNK, UNK
     Route: 048
     Dates: start: 20010101
  3. DEPAKOTE [Concomitant]
     Indication: BIPOLAR I DISORDER
     Route: 048
     Dates: start: 20010101

REACTIONS (3)
  - CEREBRAL ATROPHY [None]
  - LOSS OF CONSCIOUSNESS [None]
  - MANIA [None]
